FAERS Safety Report 7582974-3 (Version None)
Quarter: 2011Q2

REPORT INFORMATION
  Report Type: 
  Country: None (occurrence: None)
  Receive Date: 20110630
  Receipt Date: 20110624
  Transmission Date: 20111010
  Serious: Yes (Other)
  Sender: FDA-Public Use
  Company Number: US-BRACCO-004731

PATIENT
  Sex: Female
  Weight: 95.24 kg

DRUGS (25)
  1. CLONIDINE [Concomitant]
  2. METOPROLOL TARTRATE [Concomitant]
  3. VALSARTAN [Concomitant]
  4. ASPIRIN [Concomitant]
     Dosage: DOSE: }100MG
  5. MAGNEVIST [Suspect]
     Indication: ANGIOGRAM
     Dates: start: 20040617, end: 20040617
  6. MAGNEVIST [Suspect]
     Indication: NUCLEAR MAGNETIC RESONANCE IMAGING BRAIN
     Dates: start: 20060427, end: 20060427
  7. MAGNEVIST [Suspect]
     Route: 042
     Dates: start: 20040615, end: 20040615
  8. NEURONTIN [Concomitant]
  9. MAGNEVIST [Suspect]
     Dates: start: 20061127, end: 20061127
  10. ISOSORBIDE MONONITRATE [Concomitant]
  11. MAGNEVIST [Suspect]
     Indication: COMPUTERISED TOMOGRAM
     Dosage: LOWER EXTREMITY NON-JOINT (LEFT LEG)
     Route: 042
     Dates: start: 20051120, end: 20051120
  12. MAGNEVIST [Suspect]
     Dosage: ONE TO ONE MIXTURE OF DILUTE MAGNEVIST (0.1 ML IN 10 ML SALINE)
     Route: 042
     Dates: start: 20061106, end: 20061106
  13. MULTIHANCE [Suspect]
     Route: 042
     Dates: start: 20070620, end: 20070620
  14. INSULIN [Concomitant]
  15. LASIX [Concomitant]
  16. MULTIHANCE [Suspect]
     Indication: ANGIOGRAM
     Route: 042
     Dates: start: 20070416, end: 20070416
  17. PERCOCET [Concomitant]
  18. HYDRALAZINE HCL [Concomitant]
  19. ROXICODONE [Concomitant]
  20. MAGNEVIST [Suspect]
     Dosage: LOWER EXTREMITY NON-JOINT (LEFT ANKLE)
     Dates: start: 20051118, end: 20051118
  21. MAGNEVIST [Suspect]
     Route: 042
     Dates: start: 20061129, end: 20061129
  22. AMLODIPINE [Concomitant]
  23. DIOVAN [Concomitant]
  24. MAGNEVIST [Suspect]
     Indication: ARTHROGRAM
     Dates: start: 20060505, end: 20060505
  25. MAGNEVIST [Suspect]
     Route: 042
     Dates: start: 20070304, end: 20070304

REACTIONS (1)
  - NEPHROGENIC SYSTEMIC FIBROSIS [None]
